FAERS Safety Report 5865099-4 (Version None)
Quarter: 2008Q3

REPORT INFORMATION
  Report Type: 
  Country: None (occurrence: None)
  Receive Date: 20080829
  Receipt Date: 20080821
  Transmission Date: 20090109
  Serious: Yes (Other)
  Sender: FDA-Public Use
  Company Number: A0742975A

PATIENT
  Age: 53 Year
  Sex: Male
  Weight: 108.2 kg

DRUGS (7)
  1. AVANDIA [Suspect]
     Dosage: 4MG PER DAY
     Route: 048
     Dates: start: 20001020, end: 20070129
  2. COREG [Concomitant]
     Dates: start: 20060905, end: 20070516
  3. HYDROCHLOROTHIAZIDE [Concomitant]
     Dates: start: 20000907, end: 20060702
  4. PRAVACHOL [Concomitant]
     Dates: start: 20021219, end: 20040321
  5. ISOSORBIDE [Concomitant]
     Dates: start: 20060515, end: 20080229
  6. COUMADIN [Concomitant]
  7. LASIX [Concomitant]

REACTIONS (3)
  - CARDIAC DISORDER [None]
  - MYOCARDIAL INFARCTION [None]
  - RENAL IMPAIRMENT [None]
